FAERS Safety Report 7783179-3 (Version None)
Quarter: 2011Q3

REPORT INFORMATION
  Report Type: 
  Country: None (occurrence: None)
  Receive Date: 20110928
  Receipt Date: 20110926
  Transmission Date: 20111222
  Serious: Yes (Death, Hospitalization)
  Sender: FDA-Public Use
  Company Number: BR-BRISTOL-MYERS SQUIBB COMPANY-16099319

PATIENT
  Age: 53 Year
  Sex: Male

DRUGS (7)
  1. CLOPIDOGREL BISULFATE [Concomitant]
  2. AMLODIPINE BESYLATE [Concomitant]
  3. INSULIN [Concomitant]
  4. LASIX [Concomitant]
  5. ONGLYZA [Suspect]
     Indication: DIABETES MELLITUS
     Route: 048
     Dates: start: 20110201
  6. ENALAPRIL MALEATE [Concomitant]
  7. SERTRALINE HYDROCHLORIDE [Concomitant]

REACTIONS (3)
  - RESPIRATORY FAILURE [None]
  - BLOOD PRESSURE INCREASED [None]
  - CEREBROVASCULAR ACCIDENT [None]
